FAERS Safety Report 15521777 (Version 1)
Quarter: 2018Q4

REPORT INFORMATION
  Report Type: Spontaneous
  Country: US (occurrence: US)
  Receive Date: 20181018
  Receipt Date: 20181018
  Transmission Date: 20190205
  Serious: Yes (Hospitalization)
  Sender: FDA-Public Use
  Company Number: None

PATIENT
  Sex: Female

DRUGS (14)
  1. FUROSEMIDE. [Concomitant]
     Active Substance: FUROSEMIDE
  2. LACTULOSE. [Concomitant]
     Active Substance: LACTULOSE
  3. MUPIROCIN. [Concomitant]
     Active Substance: MUPIROCIN
  4. PROPANOLOL [Concomitant]
     Active Substance: PROPRANOLOL HYDROCHLORIDE
  5. URSODIOL. [Concomitant]
     Active Substance: URSODIOL
  6. OCALIVA [Suspect]
     Active Substance: OBETICHOLIC ACID
     Indication: PRIMARY BILIARY CHOLANGITIS
     Route: 048
     Dates: start: 20180505
  7. XIFAXAN [Concomitant]
     Active Substance: RIFAXIMIN
  8. OMEPRAZOLE. [Concomitant]
     Active Substance: OMEPRAZOLE
  9. CYPROHEPTAD [Concomitant]
  10. POTASSIUM CHLORIDE. [Concomitant]
     Active Substance: POTASSIUM CHLORIDE
  11. ERYTHROMYCIN. [Concomitant]
     Active Substance: ERYTHROMYCIN
  12. SPIRONOLACTONE. [Concomitant]
     Active Substance: SPIRONOLACTONE
  13. LEVOTHYROXIN [Concomitant]
     Active Substance: LEVOTHYROXINE
  14. NYSTOP [Concomitant]
     Active Substance: NYSTATIN

REACTIONS (1)
  - Ammonia increased [None]
